FAERS Safety Report 7623625-9 (Version None)
Quarter: 2011Q3

REPORT INFORMATION
  Report Type: 
  Country: None (occurrence: None)
  Receive Date: 20110712
  Receipt Date: 20110705
  Transmission Date: 20111222
  Serious: Yes (Death, Hospitalization, Other)
  Sender: FDA-Public Use
  Company Number: 2009AC000441

PATIENT
  Age: 59 Year
  Sex: Male

DRUGS (22)
  1. ALTACE [Concomitant]
  2. PROMETHAZINE [Concomitant]
  3. NITROGLYCERIN [Concomitant]
  4. DIGOXIN [Suspect]
     Indication: ATRIAL FIBRILLATION
     Dosage: 0.125 MG;QD;PO
     Route: 048
     Dates: start: 20020309, end: 20040601
  5. DIGOXIN [Suspect]
     Dosage: 0.125 MG;QOD;PO
     Route: 048
     Dates: start: 20040615, end: 20060601
  6. METOPROLOL TARTRATE [Concomitant]
  7. DILTIAZ [Concomitant]
  8. LOVENOX [Concomitant]
  9. GLYB/METFORMIN [Concomitant]
  10. TRICOR [Concomitant]
  11. PRILOSEC [Concomitant]
  12. ZOLOFT [Concomitant]
  13. DIGOXIN [Suspect]
     Dosage: 0.250 MG;BIW;PO
     Route: 048
     Dates: start: 20040615, end: 20060601
  14. ISOSORBIDE MONONITRATE [Concomitant]
  15. ZOFRAN [Concomitant]
  16. PERCOCET [Concomitant]
  17. TEMAZEPAM [Concomitant]
  18. PLAVIX [Concomitant]
  19. FUROSEMIDE [Concomitant]
  20. POTASSIUM CHLORIDE [Concomitant]
  21. DIGOXIN [Suspect]
     Dosage: 0.250 MG;QD;PO
     Route: 048
     Dates: start: 20060629, end: 20080130
  22. WARFARIN [Concomitant]

REACTIONS (25)
  - BLOOD TRIGLYCERIDES INCREASED [None]
  - RENAL COLIC [None]
  - CARDIAC ARREST [None]
  - PNEUMONIA [None]
  - FLANK PAIN [None]
  - TREATMENT NONCOMPLIANCE [None]
  - SCOLIOSIS [None]
  - ATRIAL FIBRILLATION [None]
  - ANGINA UNSTABLE [None]
  - DIABETES MELLITUS [None]
  - ECONOMIC PROBLEM [None]
  - CHOLECYSTITIS [None]
  - CHEST PAIN [None]
  - ACUTE MYOCARDIAL INFARCTION [None]
  - LEFT VENTRICULAR HYPERTROPHY [None]
  - GLYCOSYLATED HAEMOGLOBIN INCREASED [None]
  - DIABETES MELLITUS INADEQUATE CONTROL [None]
  - FATIGUE [None]
  - NAUSEA [None]
  - HYPERHIDROSIS [None]
  - INJURY [None]
  - DYSPNOEA EXERTIONAL [None]
  - PLEURAL FIBROSIS [None]
  - ATELECTASIS [None]
  - PALPITATIONS [None]
